FAERS Safety Report 9841159 (Version 1)
Quarter: 2013Q4

REPORT INFORMATION
  Report Type: Spontaneous
  Country: US (occurrence: None)
  Receive Date: 20131219
  Receipt Date: 20131219
  Transmission Date: 20140711
  Serious: Yes (Other)
  Sender: FDA-Public Use
  Company Number: 163-20785-12050144

PATIENT
  Age: 70 Year
  Sex: Male

DRUGS (1)
  1. THALOMID [Suspect]
     Indication: MYELODYSPLASTIC SYNDROME
     Dosage: 50 MG, 1 IN 1 D, PO
     Route: 048
     Dates: start: 201110, end: 20120501

REACTIONS (5)
  - Swelling face [None]
  - Hyperphagia [None]
  - Weight increased [None]
  - Local swelling [None]
  - Paraesthesia [None]
